FAERS Safety Report 5111226-6 (Version None)
Quarter: 2006Q3

REPORT INFORMATION
  Report Type: 
  Country: None (occurrence: None)
  Receive Date: 20060922
  Receipt Date: 20051219
  Transmission Date: 20061208
  Serious: No
  Sender: FDA-Public Use
  Company Number: US-GLAXOSMITHKLINE-A0586218A

PATIENT

DRUGS (1)
  1. ABREVA [Suspect]
     Indication: DRY SKIN
     Dates: start: 20051219, end: 20051219

REACTIONS (2)
  - DRUG ADMINISTRATION ERROR [None]
  - URETHRAL PAIN [None]
